FAERS Safety Report 6427586-X (Version None)
Quarter: 2009Q4

REPORT INFORMATION
  Report Type: 
  Country: None (occurrence: None)
  Receive Date: 20091104
  Receipt Date: 20091023
  Transmission Date: 20100525
  Serious: Yes (Other)
  Sender: FDA-Public Use
  Company Number: AU-PFIZER INC-2009288641

PATIENT
  Age: 34 Year
  Sex: Female

DRUGS (3)
  1. XANAX [Suspect]
  2. METHADONE [Concomitant]
     Dosage: 60 MG, 1X/DAY
     Route: 048
  3. HEROIN [Concomitant]

REACTIONS (11)
  - ABNORMAL BEHAVIOUR [None]
  - CONTUSION [None]
  - DYSPNOEA [None]
  - GAIT DISTURBANCE [None]
  - HEADACHE [None]
  - NASAL DISCOMFORT [None]
  - PRODUCTIVE COUGH [None]
  - SINUS BRADYCARDIA [None]
  - SOMNOLENCE [None]
  - SUBDURAL HAEMATOMA [None]
  - VISION BLURRED [None]
